FAERS Safety Report 11866680 (Version 1)
Quarter: 2015Q4

REPORT INFORMATION
  Report Type: Spontaneous
  Country: GB (occurrence: GB)
  Receive Date: 20151224
  Receipt Date: 20151224
  Transmission Date: 20160305
  Serious: Yes (Other)
  Sender: FDA-Public Use
  Company Number: GB-AMGEN-GBRSP2015129979

PATIENT
  Sex: Male

DRUGS (3)
  1. TRAMETINIB [Concomitant]
     Active Substance: TRAMETINIB
     Dosage: UNK
     Route: 065
  2. PROLIA [Suspect]
     Active Substance: DENOSUMAB
     Indication: PRODUCT USED FOR UNKNOWN INDICATION
     Dosage: UNK
     Route: 065
  3. DABRAFENIB [Concomitant]
     Active Substance: DABRAFENIB
     Dosage: UNK
     Route: 065

REACTIONS (13)
  - Insomnia [Unknown]
  - Constipation [Unknown]
  - Peripheral swelling [Unknown]
  - Depressed mood [Unknown]
  - Pain in extremity [Recovering/Resolving]
  - Musculoskeletal pain [Unknown]
  - Nausea [Unknown]
  - Neoplasm [Unknown]
  - Mass [Unknown]
  - Fatigue [Unknown]
  - Dyspnoea [Unknown]
  - Hyperhidrosis [Unknown]
  - Pain [Unknown]
